FAERS Safety Report 7910160-3 (Version None)
Quarter: 2011Q4

REPORT INFORMATION
  Report Type: 
  Country: None (occurrence: None)
  Receive Date: 20111111
  Receipt Date: 20111026
  Transmission Date: 20120403
  Serious: Yes (Death, Hospitalization, Other)
  Sender: FDA-Public Use
  Company Number: JP-ROCHE-756691

PATIENT
  Sex: Female
  Weight: 52 kg

DRUGS (2)
  1. LANSOPRAZOLE [Concomitant]
     Route: 048
  2. XELODA [Suspect]
     Indication: COLON CANCER RECURRENT
     Dosage: IT IS ONE ADMINISTERING WEEKLY HOLIDAY MEDICINE FOR TWO WEEKS.
     Route: 048
     Dates: start: 20100402, end: 20100611

REACTIONS (3)
  - DISEASE PROGRESSION [None]
  - ANAEMIA HAEMOLYTIC AUTOIMMUNE [None]
  - RENAL FAILURE ACUTE [None]
